FAERS Safety Report 24570205 (Version 1)
Quarter: 2024Q4

REPORT INFORMATION
  Report Type: Spontaneous
  Country: US (occurrence: US)
  Receive Date: 20241031
  Receipt Date: 20241031
  Transmission Date: 20250114
  Serious: No
  Sender: LANNETT
  Company Number: US-LANNETT COMPANY, INC.-US-2023LAN000159

PATIENT

DRUGS (2)
  1. DICYCLOMINE HYDROCHLORIDE [Suspect]
     Active Substance: DICYCLOMINE HYDROCHLORIDE
     Indication: Irritable bowel syndrome
     Dosage: 20 MG, QID
     Route: 065
  2. DICYCLOMINE HYDROCHLORIDE [Suspect]
     Active Substance: DICYCLOMINE HYDROCHLORIDE
     Dosage: LESS THAN 18 MG, QD
     Route: 065

REACTIONS (3)
  - Limb discomfort [Unknown]
  - Brain fog [Unknown]
  - Asthenia [Unknown]
